FAERS Safety Report 8069745-9 (Version None)
Quarter: 2012Q1

REPORT INFORMATION
  Report Type: 
  Country: None (occurrence: None)
  Receive Date: 20120125
  Receipt Date: 20120123
  Transmission Date: 20120608
  Serious: Yes (Hospitalization)
  Sender: FDA-Public Use
  Company Number: GB-SANOFI-AVENTIS-2012SA004805

PATIENT
  Age: 75 Year
  Sex: Male

DRUGS (8)
  1. ACETAMINOPHEN [Concomitant]
     Dosage: AS NECESSARY
     Route: 065
  2. FLUCLOXACILLIN [Concomitant]
     Route: 065
  3. RIFAMPICIN [Suspect]
     Indication: OSTEOMYELITIS
     Route: 065
     Dates: start: 20120105, end: 20120113
  4. ADALAT CC [Concomitant]
     Route: 065
  5. RAMIPRIL [Concomitant]
     Route: 065
  6. ALLOPURINOL [Concomitant]
     Route: 065
  7. METFORMIN HCL [Concomitant]
     Route: 065
  8. PRAVASTATIN [Concomitant]
     Dosage: AT NIGHT
     Route: 065

REACTIONS (1)
  - PANCYTOPENIA [None]
